FAERS Safety Report 6030863-8 (Version None)
Quarter: 2009Q1

REPORT INFORMATION
  Report Type: 
  Country: None (occurrence: None)
  Receive Date: 20090106
  Receipt Date: 20081222
  Transmission Date: 20090719
  Serious: Yes (Hospitalization)
  Sender: FDA-Public Use
  Company Number: KV200801255

PATIENT
  Sex: Female

DRUGS (3)
  1. ISOSORBIDE MONONITRATE [Suspect]
     Indication: ATRIAL FIBRILLATION
     Dosage: ORAL
     Route: 048
     Dates: end: 20080701
  2. BLOOD THINNER (NOS) [Concomitant]
  3. ANTIHYPERINTENSIVES [Concomitant]

REACTIONS (2)
  - ATRIAL FIBRILLATION [None]
  - PRODUCT QUALITY ISSUE [None]
